FAERS Safety Report 5692168-4 (Version None)
Quarter: 2008Q2

REPORT INFORMATION
  Report Type: 
  Country: None (occurrence: None)
  Receive Date: 20080402
  Receipt Date: 20080327
  Transmission Date: 20081010
  Serious: Yes (Hospitalization)
  Sender: FDA-Public Use
  Company Number: A0718726A

PATIENT
  Age: 45 Year
  Sex: Female
  Weight: 63 kg

DRUGS (3)
  1. SERETIDE [Suspect]
     Indication: ASTHMA
     Route: 055
     Dates: start: 20040101
  2. AMOXICILLIN [Concomitant]
     Dates: start: 20020101, end: 20071025
  3. PREDNISONE TAB [Concomitant]
     Dates: start: 20040101, end: 20080318

REACTIONS (3)
  - DYSPNOEA [None]
  - FLUSHING [None]
  - GENERALISED OEDEMA [None]
